FAERS Safety Report 10718005 (Version 12)
Quarter: 2016Q4

REPORT INFORMATION
  Report Type: Spontaneous
  Country: US (occurrence: US)
  Receive Date: 20150116
  Receipt Date: 20161221
  Transmission Date: 20170206
  Serious: Yes (Hospitalization, Other)
  Sender: FDA-Public Use
  Company Number: US-SANKYOGER-DSU-2012-07916

PATIENT
  Age: 73 Year
  Sex: Male
  Weight: 81 kg

DRUGS (2)
  1. BENICAR [Suspect]
     Active Substance: OLMESARTAN MEDOXOMIL
     Indication: HYPERTENSION
     Dosage: UNK
     Dates: start: 2006, end: 20121008
  2. BENICAR HCT [Suspect]
     Active Substance: HYDROCHLOROTHIAZIDE\OLMESARTAN MEDOXOMIL
     Indication: HYPERTENSION
     Dosage: 40/12.5 MG, QD
     Route: 048
     Dates: start: 2006, end: 201207

REACTIONS (11)
  - Chronic kidney disease [Unknown]
  - Acute kidney injury [Recovered/Resolved]
  - Haemorrhoids [Unknown]
  - Rash [Unknown]
  - Impaired gastric emptying [Recovered/Resolved]
  - Malabsorption [Recovered/Resolved]
  - Gastrooesophageal reflux disease [Recovered/Resolved]
  - Fear of eating [Recovered/Resolved]
  - Polyp [Unknown]
  - Depression [Recovered/Resolved]
  - Organ failure [Recovered/Resolved]

NARRATIVE: CASE EVENT DATE: 20110218
